FAERS Safety Report 8961653 (Version 1)
Quarter: 2012Q4

REPORT INFORMATION
  Report Type: Report from Study
  Country: CA (occurrence: CA)
  Receive Date: 20121212
  Receipt Date: 20121212
  Transmission Date: 20130627
  Serious: Yes (Other)
  Sender: FDA-Public Use
  Company Number: CA-ROCHE-1165728

PATIENT
  Sex: Male
  Weight: 93.07 kg

DRUGS (2)
  1. OMALIZUMAB [Suspect]
     Indication: ASTHMA
     Route: 058
     Dates: start: 20060309
  2. CORTISONE [Concomitant]
     Route: 065
     Dates: start: 20070320

REACTIONS (15)
  - Oedema peripheral [Recovering/Resolving]
  - Swelling [Unknown]
  - Hypersensitivity [Unknown]
  - Malaise [Unknown]
  - Pain in extremity [Unknown]
  - Phlebitis [Unknown]
  - Productive cough [Unknown]
  - Pyrexia [Unknown]
  - Feeling hot [Unknown]
  - Sensation of heaviness [Unknown]
  - Joint range of motion decreased [Unknown]
  - Ocular hyperaemia [Unknown]
  - Eye irritation [Unknown]
  - Rhinorrhoea [Unknown]
  - Sputum discoloured [Unknown]
